FAERS Safety Report 17938146 (Version 2)
Quarter: 2020Q2

REPORT INFORMATION
  Report Type: Report from Study
  Country: CA (occurrence: CA)
  Receive Date: 20200624
  Receipt Date: 20200624
  Transmission Date: 20200714
  Serious: Yes (Hospitalization, Other)
  Sender: FDA-Public Use
  Company Number: CA-ACCORD-186309

PATIENT
  Age: 59 Year
  Sex: Female
  Weight: 56 kg

DRUGS (19)
  1. PREGABALIN. [Concomitant]
     Active Substance: PREGABALIN
  2. GEMCITABINE/GEMCITABINE HYDROCHLORIDE [Suspect]
     Active Substance: GEMCITABINE\GEMCITABINE HYDROCHLORIDE
     Indication: NEOPLASM MALIGNANT
  3. PAMIDRONIC ACID [Concomitant]
     Active Substance: PAMIDRONIC ACID
  4. DEXAMETHASONE. [Concomitant]
     Active Substance: DEXAMETHASONE
  5. COLACE [Concomitant]
     Active Substance: DOCUSATE SODIUM
  6. CEFADROXIL. [Concomitant]
     Active Substance: CEFADROXIL
  7. CALCIUM LACTATE\CALCIUM PHOSPHATE\ERGOCALCIFEROL [Concomitant]
     Active Substance: CALCIUM LACTATE\CALCIUM PHOSPHATE\ERGOCALCIFEROL
  8. CELEBREX [Concomitant]
     Active Substance: CELECOXIB
  9. DEXAMETHASONE. [Concomitant]
     Active Substance: DEXAMETHASONE
  10. SENOKOT [Concomitant]
     Active Substance: SENNOSIDES
  11. CIPROFLOXACIN. [Concomitant]
     Active Substance: CIPROFLOXACIN
  12. METRONIDAZOLE. [Concomitant]
     Active Substance: METRONIDAZOLE
  13. MORPHINE [Concomitant]
     Active Substance: MORPHINE
  14. PIPERACILLIN/TAZOBACTAM [Concomitant]
     Active Substance: PIPERACILLIN SODIUM\TAZOBACTAM SODIUM
  15. PARACETAMOL [Concomitant]
     Active Substance: ACETAMINOPHEN
  16. HYDROCORTISONE. [Concomitant]
     Active Substance: HYDROCORTISONE
  17. LOVENOX HP [Concomitant]
     Active Substance: ENOXAPARIN SODIUM
     Dosage: SINGLEDOSE PRE-FILLED SYRINGE 120MG/0.8ML,SOLUTION SUBCUTANEOUS
  18. SODIUM CHLORIDE. [Concomitant]
     Active Substance: SODIUM CHLORIDE
  19. STEMETIL [Concomitant]
     Active Substance: PROCHLORPERAZINE

REACTIONS (11)
  - Pyrexia [Recovered/Resolved]
  - Staphylococcal infection [Recovered/Resolved]
  - Pleural effusion [Recovered/Resolved]
  - Pseudomonas infection [Recovered/Resolved]
  - Sinus tachycardia [Recovered/Resolved]
  - Bacterial infection [Recovered/Resolved]
  - Wound infection pseudomonas [Recovered/Resolved]
  - Wound infection staphylococcal [Recovered/Resolved]
  - Abdominal pain [Recovered/Resolved]
  - Chills [Recovered/Resolved]
  - Ventricular extrasystoles [Recovered/Resolved]
